FAERS Safety Report 4554559-4 (Version None)
Quarter: 2005Q1

REPORT INFORMATION
  Report Type: 
  Country: None (occurrence: None)
  Receive Date: 20050118
  Receipt Date: 20050112
  Transmission Date: 20050727
  Serious: Yes (Other)
  Sender: FDA-Public Use
  Company Number: US-BRISTOL-MYERS SQUIBB COMPANY-12821567

PATIENT
  Age: 69 Year
  Sex: Male
  Weight: 92 kg

DRUGS (5)
  1. CETUXIMAB [Suspect]
     Indication: PANCREATIC CARCINOMA
     Dosage: ARM B.1ST GIVEN 02-FEB-04. TOTAL DOSE THIS COURSE 3090 MG (COURSE 8). 27-DEC-04 DOSE DELAYED.
     Dates: start: 20041220, end: 20041220
  2. DOCETAXEL [Suspect]
     Indication: PANCREATIC CARCINOMA
     Dosage: ARM B.1ST GIVEN 02-FEB-04. TOTAL DOSE THIS COURSE 288 MG (COURSE 8). 27-DEC-04 DOSE DELAYED.
     Dates: start: 20041206, end: 20041206
  3. DOCETAXEL [Suspect]
     Dates: start: 20041206, end: 20041206
  4. IRINOTECAN HCL [Suspect]
     Indication: PANCREATIC CARCINOMA
     Dosage: ARM B.1ST GIVEN 02-FEB-04. TOTAL DOSE THIS COURSE 412 MG (COURSE 8). 27-DEC-04 DOSE DELAYED.
     Dates: start: 20041206, end: 20041206
  5. ENOXAPARIN SODIUM [Concomitant]
     Indication: PANCREATIC CARCINOMA
     Dosage: TOTAL DOSE THIS COURSE 1600 MG.
     Dates: start: 20041224, end: 20041224

REACTIONS (1)
  - HYPOMAGNESAEMIA [None]
